FAERS Safety Report 24403827 (Version 1)
Quarter: 2024Q4

REPORT INFORMATION
  Report Type: Report from Study
  Country: IT (occurrence: IT)
  Receive Date: 20241007
  Receipt Date: 20241007
  Transmission Date: 20250114
  Serious: No
  Sender: ROCHE
  Company Number: IT-ROCHE-3165768

PATIENT
  Age: 66 Year
  Sex: Male

DRUGS (1)
  1. OBINUTUZUMAB [Suspect]
     Active Substance: OBINUTUZUMAB
     Indication: Follicular lymphoma
     Dosage: DATE OF INDUCTION TREATMENT START:16/JUL/2020, NUMBER OF CYCLES RECEIVED (AT STUDY ENTRY):2?ON DAY 1
     Route: 042
     Dates: start: 20200716

REACTIONS (3)
  - COVID-19 [Recovered/Resolved]
  - Colitis [Not Recovered/Not Resolved]
  - Eosinophilia [Recovered/Resolved]

NARRATIVE: CASE EVENT DATE: 20201006
